FAERS Safety Report 24692419 (Version 3)
Quarter: 2024Q4

REPORT INFORMATION
  Report Type: Spontaneous
  Country: SK (occurrence: SK)
  Receive Date: 20241203
  Receipt Date: 20241212
  Transmission Date: 20250115
  Serious: Yes (Other)
  Sender: NOVARTIS
  Company Number: SK-SANDOZ-SDZ2024SK098454

PATIENT
  Age: 60 Year

DRUGS (2)
  1. IMATINIB [Suspect]
     Active Substance: IMATINIB
     Indication: Chronic myeloid leukaemia
     Dosage: UNK
     Route: 065
     Dates: end: 2022
  2. IMATINIB [Suspect]
     Active Substance: IMATINIB
     Dosage: UNK
     Route: 065

REACTIONS (4)
  - Tumour flare [Unknown]
  - Mitral valve incompetence [Unknown]
  - Essential thrombocythaemia [Unknown]
  - Thrombocytosis [Unknown]

NARRATIVE: CASE EVENT DATE: 20200101
